FAERS Safety Report 10675474 (Version 1)
Quarter: 2014Q4

REPORT INFORMATION
  Report Type: Spontaneous
  Country: US (occurrence: US)
  Receive Date: 20141224
  Receipt Date: 20141224
  Transmission Date: 20150529
  Serious: No
  Sender: FDA-Public Use
  Company Number: US-ASTRAZENECA-2014SE95913

PATIENT
  Age: 24971 Day
  Sex: Female
  Weight: 60.8 kg

DRUGS (4)
  1. PULMICORT FLEXHALER [Suspect]
     Active Substance: BUDESONIDE
     Indication: DYSPNOEA
     Dosage: ONE PUFF; TWO TIMES A DAY
     Route: 055
     Dates: start: 20141211
  2. PULMICORT FLEXHALER [Suspect]
     Active Substance: BUDESONIDE
     Indication: PULMONARY OEDEMA
     Dosage: ONE PUFF; TWO TIMES A DAY
     Route: 055
     Dates: start: 20141211
  3. ZOLPIDEM [Concomitant]
     Active Substance: ZOLPIDEM\ZOLPIDEM TARTRATE
     Route: 048
     Dates: start: 20141211
  4. PULMICORT FLEXHALER [Suspect]
     Active Substance: BUDESONIDE
     Indication: PNEUMONIA
     Dosage: ONE PUFF; TWO TIMES A DAY
     Route: 055
     Dates: start: 20141211

REACTIONS (3)
  - Diarrhoea [Unknown]
  - Product use issue [Not Recovered/Not Resolved]
  - Abdominal discomfort [Unknown]

NARRATIVE: CASE EVENT DATE: 20141211
